FAERS Safety Report 19426591 (Version 2)
Quarter: 2021Q2

REPORT INFORMATION
  Report Type: Spontaneous
  Country: FR (occurrence: FR)
  Receive Date: 20210616
  Receipt Date: 20210622
  Transmission Date: 20210717
  Serious: Yes (Death, Other)
  Sender: FDA-Public Use
  Company Number: FR-009507513-2106FRA003536

PATIENT
  Age: 59 Year
  Sex: Male

DRUGS (1)
  1. KEYTRUDA [Suspect]
     Active Substance: PEMBROLIZUMAB
     Indication: HEAD AND NECK CANCER
     Dosage: UNK, INFUSION EVERY 3 WEEKS

REACTIONS (2)
  - Tumour hyperprogression [Fatal]
  - Tumour necrosis [Fatal]
